FAERS Safety Report 16394498 (Version 1)
Quarter: 2019Q2

REPORT INFORMATION
  Report Type: Spontaneous
  Country: FR (occurrence: FR)
  Receive Date: 20190605
  Receipt Date: 20190605
  Transmission Date: 20190711
  Serious: Yes (Hospitalization, Other)
  Sender: FDA-Public Use
  Company Number: FR-MYLANLABS-2019M1052066

PATIENT
  Age: 25 Year
  Sex: Male

DRUGS (2)
  1. PREDNISOLONE. [Suspect]
     Active Substance: PREDNISOLONE
     Indication: EAR, NOSE AND THROAT EXAMINATION ABNORMAL
     Dosage: UNK
     Route: 048
     Dates: start: 20180112
  2. TAVANIC [Suspect]
     Active Substance: LEVOFLOXACIN
     Indication: EAR, NOSE AND THROAT EXAMINATION ABNORMAL
     Dosage: UNK
     Route: 048
     Dates: start: 20180112

REACTIONS (10)
  - Peripheral swelling [Recovered/Resolved]
  - Pain [Recovered/Resolved]
  - Headache [Recovered/Resolved]
  - Myalgia [Recovered/Resolved]
  - Influenza [Recovered/Resolved]
  - Joint lock [Recovered/Resolved]
  - Burning sensation [Recovered/Resolved]
  - Inflammatory bowel disease [Recovered/Resolved]
  - Swelling [Recovered/Resolved]
  - Arthralgia [Recovered/Resolved]
